FAERS Safety Report 5405504-0 (Version None)
Quarter: 2007Q3

REPORT INFORMATION
  Report Type: 
  Country: None (occurrence: None)
  Receive Date: 20070803
  Receipt Date: 20070725
  Transmission Date: 20080115
  Serious: Yes (Death, Other)
  Sender: FDA-Public Use
  Company Number: DE-PFIZER INC-2007061270

PATIENT
  Age: 26 Year
  Sex: Male

DRUGS (4)
  1. ZELDOX (CAPSULES) [Suspect]
     Indication: SCHIZOPHRENIA, PARANOID TYPE
     Dosage: DAILY DOSE:160MG
     Route: 048
  2. LORAZEPAM [Concomitant]
  3. RISPERDAL [Concomitant]
  4. DIAZEPAM [Concomitant]

REACTIONS (5)
  - COMPLETED SUICIDE [None]
  - ERECTILE DYSFUNCTION [None]
  - PARKINSONISM [None]
  - RESTLESSNESS [None]
  - SLEEP DISORDER [None]
